FAERS Safety Report 11340823 (Version 1)
Quarter: 2015Q3

REPORT INFORMATION
  Report Type: Spontaneous
  Country: US (occurrence: US)
  Receive Date: 20150805
  Receipt Date: 20150805
  Transmission Date: 20151125
  Serious: Yes (Hospitalization)
  Sender: FDA-Public Use
  Company Number: US-PFIZER INC-2015256392

PATIENT
  Age: 18 Year
  Sex: Female

DRUGS (6)
  1. THIOTHIXENE HCL [Suspect]
     Active Substance: THIOTHIXENE HYDROCHLORIDE
     Indication: DRUG ABUSE
     Dosage: 10 MG, DAILY
  2. THIOTHIXENE HCL [Suspect]
     Active Substance: THIOTHIXENE HYDROCHLORIDE
     Dosage: 30 MG, UNK
  3. BENZTROPINE [Suspect]
     Active Substance: BENZTROPINE
     Indication: EXTRAPYRAMIDAL DISORDER
     Dosage: 25 1-MG  TABLETS, USED SPORADICALLY
  4. THIOTHIXENE HCL [Suspect]
     Active Substance: THIOTHIXENE HYDROCHLORIDE
     Dosage: 10 MG, UNK
  5. THIOTHIXENE HCL [Suspect]
     Active Substance: THIOTHIXENE HYDROCHLORIDE
     Dosage: 20 MG, UNK
  6. THIOTHIXENE HCL [Suspect]
     Active Substance: THIOTHIXENE HYDROCHLORIDE
     Dosage: 40 MG, DAILY

REACTIONS (2)
  - Cholinergic syndrome [Recovered/Resolved]
  - Suicide attempt [Unknown]
